FAERS Safety Report 18583233 (Version 2)
Quarter: 2021Q3

REPORT INFORMATION
  Report Type: Report from Study
  Country: MX (occurrence: MX)
  Receive Date: 20201206
  Receipt Date: 20210727
  Transmission Date: 20211014
  Serious: Yes (Death, Other)
  Sender: FDA-Public Use
  Company Number: MX-UCBSA-2020048819

PATIENT
  Sex: Male
  Weight: 88 kg

DRUGS (2)
  1. NEO MELUBRINA [Concomitant]
     Indication: BLOOD GLUCOSE
  2. ROTIGOTINE [Suspect]
     Active Substance: ROTIGOTINE
     Indication: PARKINSON^S DISEASE
     Dosage: 6 MG EVERY THIRD DAY
     Route: 062
     Dates: start: 2019

REACTIONS (6)
  - Gait inability [Not Recovered/Not Resolved]
  - Blood glucose increased [Fatal]
  - Cardiac arrest [Fatal]
  - Diabetes mellitus [Unknown]
  - Drug ineffective [Unknown]
  - Off label use [Unknown]

NARRATIVE: CASE EVENT DATE: 2019
